FAERS Safety Report 8766760 (Version 2)
Quarter: 2012Q4

REPORT INFORMATION
  Report Type: 
  Country: US (occurrence: US)
  Receive Date: 20120831
  Receipt Date: 20121008
  Transmission Date: 20130627
  Serious: Yes (Other)
  Sender: FDA-Public Use
  Company Number: US-ASTELLAS-2012US007329

PATIENT
  Sex: Male

DRUGS (11)
  1. TARCEVA [Suspect]
     Indication: NON-SMALL CELL LUNG CANCER
     Dosage: 150 mg, UID/QD
     Route: 048
     Dates: start: 201008
  2. TARCEVA [Suspect]
     Dosage: 100 mg, UID/QD
     Route: 048
     Dates: start: 201011
  3. TARCEVA [Suspect]
     Dosage: 50 mg, UID/QD
     Route: 048
     Dates: start: 201102, end: 201203
  4. TARCEVA [Suspect]
     Dosage: 150 mg, UID/QD
     Route: 048
     Dates: start: 201203
  5. AMBIEN [Concomitant]
     Indication: PRODUCT USED FOR UNKNOWN INDICATION
     Dosage: 10 mg, Unknown/D
     Route: 065
  6. ACTIVE HEXOSE CORRELATED COMPOUND [Concomitant]
     Indication: SUPPLEMENTATION THERAPY
     Dosage: 500 mg, Unknown/D
     Route: 065
  7. MULTIVITAMINS, PLAIN [Concomitant]
     Indication: PRODUCT USED FOR UNKNOWN INDICATION
     Dosage: UNK
     Route: 065
  8. B-D GLUCOSE [Concomitant]
     Indication: PRODUCT USED FOR UNKNOWN INDICATION
     Dosage: 200 mg, Unknown/D
     Route: 065
  9. VITAMIN C                          /00444401/ [Concomitant]
     Indication: PRODUCT USED FOR UNKNOWN INDICATION
     Dosage: 1000 mg, Unknown/D
     Route: 065
  10. ZANTAC [Concomitant]
     Indication: PRODUCT USED FOR UNKNOWN INDICATION
     Dosage: UNK
     Route: 065
  11. ADVAIR [Concomitant]
     Indication: PRODUCT USED FOR UNKNOWN INDICATION
     Dosage: UNK
     Route: 065

REACTIONS (3)
  - Metastases to central nervous system [Unknown]
  - Gastrooesophageal reflux disease [Unknown]
  - Rash [Unknown]
